FAERS Safety Report 8371403-8 (Version None)
Quarter: 2012Q2

REPORT INFORMATION
  Report Type: 
  Country: None (occurrence: None)
  Receive Date: 20120518
  Receipt Date: 20120509
  Transmission Date: 20120825
  Serious: Yes (Hospitalization, Other)
  Sender: FDA-Public Use
  Company Number: US-ASTRAZENECA-2012SE30205

PATIENT

DRUGS (2)
  1. LITHIUM CARBONATE [Suspect]
     Route: 065
  2. SEROQUEL [Suspect]
     Route: 048

REACTIONS (2)
  - NEUROMYOPATHY [None]
  - TOXICITY TO VARIOUS AGENTS [None]
